FAERS Safety Report 16445828 (Version 2)
Quarter: 2019Q3

REPORT INFORMATION
  Report Type: Report from Study
  Country: JP (occurrence: JP)
  Receive Date: 20190618
  Receipt Date: 20190830
  Transmission Date: 20191004
  Serious: Yes (Hospitalization)
  Sender: FDA-Public Use
  Company Number: JP-JT-EVA201900803KERYXP-001

PATIENT
  Age: 88 Year
  Sex: Female
  Weight: 45.4 kg

DRUGS (13)
  1. CEROCRAL [Concomitant]
     Active Substance: IFENPRODIL
     Dosage: 40 MILLIGRAM, QD
     Route: 048
  2. MIRCERA [Concomitant]
     Active Substance: METHOXY POLYETHYLENE GLYCOL-EPOETIN BETA
     Dosage: 25 MICROGRAM, 4 DOSES IN 6 MONTHS
     Route: 065
  3. MIRCERA [Concomitant]
     Active Substance: METHOXY POLYETHYLENE GLYCOL-EPOETIN BETA
     Dosage: 50 MICROGRAM, 4 DOSES IN 6 MONTHS
     Route: 065
  4. URITOS [Concomitant]
     Active Substance: IMIDAFENACIN
     Dosage: 0.1 MILLIGRAM, QD
     Route: 048
     Dates: start: 20151109
  5. CALCITRIOL. [Concomitant]
     Active Substance: CALCITRIOL
     Indication: HYPERPARATHYROIDISM SECONDARY
     Dosage: 0.15 MICROGRAM, QD
     Route: 048
     Dates: start: 20160215, end: 20180808
  6. PANTOSIN [Concomitant]
     Active Substance: PANTETHINE
     Dosage: 300 MILLIGRAM, QD
     Route: 048
     Dates: start: 20170412, end: 20180724
  7. RIONA [Suspect]
     Active Substance: FERRIC CITRATE ANHYDROUS
     Indication: HYPERPHOSPHATAEMIA
     Dosage: 750 MILLIGRAM, QD
     Route: 048
     Dates: start: 20170823, end: 20180724
  8. MAGMITT [Concomitant]
     Active Substance: MAGNESIUM OXIDE
     Dosage: 500 MILLIGRAM, QD
     Route: 048
     Dates: start: 20151116, end: 20171226
  9. MIRCERA [Concomitant]
     Active Substance: METHOXY POLYETHYLENE GLYCOL-EPOETIN BETA
     Indication: NEPHROGENIC ANAEMIA
     Dosage: 25 MICROGRAM, 5 DOSES IN 3 MONTHS
     Route: 065
  10. THYRADIN [Concomitant]
     Active Substance: LEVOTHYROXINE
     Dosage: 50 MICROGRAM, QD
     Route: 048
     Dates: start: 20170406
  11. MIRCERA [Concomitant]
     Active Substance: METHOXY POLYETHYLENE GLYCOL-EPOETIN BETA
     Dosage: 25 MICROGRAM, 4 DOSES IN 3 MONTHS
     Route: 065
  12. MIRCERA [Concomitant]
     Active Substance: METHOXY POLYETHYLENE GLYCOL-EPOETIN BETA
     Dosage: 50 MICROGRAM, 2 DOSES IN 3 MONTHS
     Route: 065
  13. PARIET [Concomitant]
     Active Substance: RABEPRAZOLE SODIUM
     Indication: HYPERCHLORHYDRIA
     Dosage: 10 MILLIGRAM, QD
     Route: 048
     Dates: end: 20180724

REACTIONS (2)
  - Hyponatraemia [Recovering/Resolving]
  - Constipation [Recovering/Resolving]

NARRATIVE: CASE EVENT DATE: 20171227
